FAERS Safety Report 10314157 (Version 3)
Quarter: 2014Q4

REPORT INFORMATION
  Report Type: Report from Study
  Country: TR (occurrence: TR)
  Receive Date: 20140718
  Receipt Date: 20141001
  Transmission Date: 20150528
  Serious: Yes (Death, Hospitalization)
  Sender: FDA-Public Use
  Company Number: TR-BAYER-2014-086798

PATIENT
  Sex: Female
  Weight: 49 kg

DRUGS (8)
  1. REGORAFENIB [Suspect]
     Active Substance: REGORAFENIB
     Indication: COLORECTAL CANCER METASTATIC
     Dosage: (40 MG X 4)  160 MG, QD
     Route: 048
     Dates: start: 20140115, end: 20140204
  2. REGORAFENIB [Suspect]
     Active Substance: REGORAFENIB
     Indication: COLORECTAL CANCER METASTATIC
     Dosage: 0 MG
     Route: 048
     Dates: start: 20140408, end: 20140421
  3. REGORAFENIB [Suspect]
     Active Substance: REGORAFENIB
     Indication: COLORECTAL CANCER METASTATIC
     Dosage: (40 MG X 3)  120 MG DAILY
     Route: 048
     Dates: start: 20140422, end: 20140512
  4. LEVOTHYROX [Concomitant]
     Active Substance: LEVOTHYROXINE
     Indication: AUTOIMMUNE THYROIDITIS
     Dosage: 100 MCG DAILY
     Route: 048
     Dates: start: 20041204
  5. REGORAFENIB [Suspect]
     Active Substance: REGORAFENIB
     Indication: COLORECTAL CANCER METASTATIC
     Dosage: (40 MG X 3)  120 MG, QD
     Route: 048
     Dates: start: 20140520, end: 20140530
  6. REGORAFENIB [Suspect]
     Active Substance: REGORAFENIB
     Indication: COLORECTAL CANCER METASTATIC
     Dosage: 0 MG
     Route: 048
     Dates: start: 20140331, end: 20140401
  7. REGORAFENIB [Suspect]
     Active Substance: REGORAFENIB
     Indication: COLORECTAL CANCER METASTATIC
     Dosage: (40 MG X 4) 160 MG DAILY
     Route: 048
     Dates: start: 20140212, end: 20140304
  8. REGORAFENIB [Suspect]
     Active Substance: REGORAFENIB
     Indication: COLORECTAL CANCER METASTATIC
     Dosage: (40 MG X 4) 160 MG, QD
     Route: 048
     Dates: start: 20140312, end: 20140330

REACTIONS (1)
  - Sepsis [Fatal]

NARRATIVE: CASE EVENT DATE: 20140607
